FAERS Safety Report 5140049-7 (Version None)
Quarter: 2006Q4

REPORT INFORMATION
  Report Type: 
  Country: None (occurrence: None)
  Receive Date: 20061024
  Receipt Date: 20061010
  Transmission Date: 20070319
  Serious: Yes (Death)
  Sender: FDA-Public Use
  Company Number: US200608004989

PATIENT
  Age: 86 Year
  Sex: Female

DRUGS (2)
  1. FORTEO [Suspect]
     Indication: OSTEOPOROSIS
     Dosage: UNK, UNK, UNK
     Dates: start: 20060707
  2. FORTEO [Concomitant]

REACTIONS (7)
  - ERYTHEMA [None]
  - INFLAMMATION [None]
  - MASS [None]
  - MUSCLE RIGIDITY [None]
  - OEDEMA PERIPHERAL [None]
  - PANCREATIC DISORDER [None]
  - THROMBOSIS [None]
